FAERS Safety Report 23734870 (Version 1)
Quarter: 2024Q2

REPORT INFORMATION
  Report Type: Report from Study
  Country: US (occurrence: None)
  Receive Date: 20240412
  Receipt Date: 20240412
  Transmission Date: 20240716
  Serious: Yes (Death, Other)
  Sender: FDA-Public Use
  Company Number: 2024A086648

PATIENT
  Sex: Female

DRUGS (1)
  1. LYNPARZA [Suspect]
     Active Substance: OLAPARIB
     Dosage: LYNPARZA 150MG TABLET -TAKE 1 TABLET BY MOUTH IN THE MORNING AND 2 TABLETS IN THE EVENING EVERY DAY.
     Route: 048

REACTIONS (1)
  - Death [Fatal]
